FAERS Safety Report 21810311 (Version 1)
Quarter: 2023Q1

REPORT INFORMATION
  Report Type: Spontaneous
  Country: US (occurrence: None)
  Receive Date: 20230101
  Receipt Date: 20230101
  Transmission Date: 20230417
  Serious: Yes (Other)
  Sender: FDA-Public Use
  Company Number: None

PATIENT
  Age: 38 Year
  Sex: Female
  Weight: 81 kg

DRUGS (1)
  1. PAXLOVID [Suspect]
     Active Substance: NIRMATRELVIR\RITONAVIR
     Indication: SARS-CoV-2 test positive

REACTIONS (4)
  - Nasal congestion [None]
  - Sneezing [None]
  - Rhinorrhoea [None]
  - SARS-CoV-2 test positive [None]

NARRATIVE: CASE EVENT DATE: 20221231
